FAERS Safety Report 4552061-7 (Version None)
Quarter: 2005Q1

REPORT INFORMATION
  Report Type: 
  Country: None (occurrence: None)
  Receive Date: 20050112
  Receipt Date: 20041221
  Transmission Date: 20050727
  Serious: Yes (Hospitalization, Other)
  Sender: FDA-Public Use
  Company Number: USA040773311

PATIENT
  Age: 73 Year
  Sex: Female

DRUGS (5)
  1. EVISTA [Suspect]
     Indication: OSTEOPOROSIS
     Dosage: 60 MG/1 DAY
     Dates: start: 19990101
  2. SYNTHROID [Concomitant]
  3. METOPROLOL [Concomitant]
  4. CALCIUM GLUCONATE [Concomitant]
  5. MULTIVITAMINS NOS (MULTIVITAMINS NOS) [Concomitant]

REACTIONS (1)
  - RADICAL MASTECTOMY [None]
